FAERS Safety Report 24943123 (Version 2)
Quarter: 2025Q1

REPORT INFORMATION
  Report Type: Spontaneous
  Country: US (occurrence: US)
  Receive Date: 20250207
  Receipt Date: 20250312
  Transmission Date: 20250409
  Serious: No
  Sender: VERTEX
  Company Number: US-VERTEX PHARMACEUTICALS-2025-001802

PATIENT
  Age: 26 Year
  Sex: Female

DRUGS (1)
  1. KALYDECO [Suspect]
     Active Substance: IVACAFTOR
     Indication: Cystic fibrosis
     Route: 048

REACTIONS (5)
  - Acne [Unknown]
  - Swelling face [Unknown]
  - Abdominal distension [Unknown]
  - Weight increased [Unknown]
  - Skin disorder [Unknown]
